FAERS Safety Report 7447573-2 (Version None)
Quarter: 2011Q2

REPORT INFORMATION
  Report Type: 
  Country: None (occurrence: None)
  Receive Date: 20110420
  Receipt Date: 20110404
  Transmission Date: 20111010
  Serious: Yes (Hospitalization)
  Sender: FDA-Public Use
  Company Number: DSA_45358_2011

PATIENT
  Age: 77 Year
  Sex: Female

DRUGS (7)
  1. ENALAPRIL MALEATE [Suspect]
     Indication: PRODUCT USED FOR UNKNOWN INDICATION
     Dosage: DF, ORAL
     Route: 048
     Dates: start: 20100203, end: 20110114
  2. WARFARIN SODIUM [Suspect]
     Indication: THROMBOSIS PROPHYLAXIS
     Dosage: 24 1X/WEEK ORAL; 24 MG 1X/WEEK ORAL; 24MG 1X/WEEK ORAL
     Route: 048
     Dates: start: 20091102, end: 20101211
  3. WARFARIN SODIUM [Suspect]
     Indication: THROMBOSIS PROPHYLAXIS
     Dosage: 24 1X/WEEK ORAL; 24 MG 1X/WEEK ORAL; 24MG 1X/WEEK ORAL
     Route: 048
     Dates: start: 20110116
  4. WARFARIN SODIUM [Suspect]
     Indication: THROMBOSIS PROPHYLAXIS
     Dosage: 24 1X/WEEK ORAL; 24 MG 1X/WEEK ORAL; 24MG 1X/WEEK ORAL
     Route: 048
     Dates: start: 20101220, end: 20110114
  5. APIXABAN [Suspect]
     Indication: THROMBOSIS PROPHYLAXIS
     Dosage: 10 MG QD ORAL; 10 MG QS ORAL; 10 MG QD ORAL
     Route: 048
     Dates: start: 20091102, end: 20101211
  6. APIXABAN [Suspect]
     Indication: THROMBOSIS PROPHYLAXIS
     Dosage: 10 MG QD ORAL; 10 MG QS ORAL; 10 MG QD ORAL
     Route: 048
     Dates: start: 20110116
  7. APIXABAN [Suspect]
     Indication: THROMBOSIS PROPHYLAXIS
     Dosage: 10 MG QD ORAL; 10 MG QS ORAL; 10 MG QD ORAL
     Route: 048
     Dates: start: 20101220, end: 20110114

REACTIONS (13)
  - ESCHERICHIA TEST POSITIVE [None]
  - HAEMATURIA [None]
  - CONDITION AGGRAVATED [None]
  - DIZZINESS [None]
  - ASTHENIA [None]
  - DIVERTICULITIS [None]
  - HYPERKALAEMIA [None]
  - BACK PAIN [None]
  - DYSURIA [None]
  - CALCULUS URINARY [None]
  - RENAL FAILURE CHRONIC [None]
  - RENAL COLIC [None]
  - MICROCYTIC ANAEMIA [None]
